FAERS Safety Report 6217729-5 (Version None)
Quarter: 2009Q2

REPORT INFORMATION
  Report Type: 
  Country: None (occurrence: None)
  Receive Date: 20090608
  Receipt Date: 20090601
  Transmission Date: 20091009
  Serious: Yes (Death, Hospitalization)
  Sender: FDA-Public Use
  Company Number: US-BAYER-200912089NA

PATIENT
  Age: 86 Year
  Sex: Female

DRUGS (1)
  1. AVELOX [Suspect]
     Indication: DIVERTICULITIS
     Dates: start: 20080101

REACTIONS (2)
  - CLOSTRIDIAL INFECTION [None]
  - DEATH [None]
